FAERS Safety Report 8252807-0 (Version None)
Quarter: 2012Q2

REPORT INFORMATION
  Report Type: 
  Country: None (occurrence: None)
  Receive Date: 20120402
  Receipt Date: 20111221
  Transmission Date: 20120825
  Serious: No
  Sender: FDA-Public Use
  Company Number: US-ABBOTT-11P-163-0885200-00

PATIENT
  Sex: Male

DRUGS (8)
  1. GABAPENTIN [Concomitant]
     Indication: INFLAMMATION
  2. ASPIRIN [Concomitant]
     Indication: PRODUCT USED FOR UNKNOWN INDICATION
  3. UNKNOWN PAIN MEDICATION [Concomitant]
     Indication: PAIN
  4. NAPROSYN [Concomitant]
     Indication: PAIN
  5. NABUMETONE [Concomitant]
     Indication: PAIN
  6. ANDROGEL [Suspect]
     Indication: BLOOD TESTOSTERONE DECREASED
     Dosage: 8 PUMPS PER DAY
     Dates: start: 20100101
  7. OMEPRAZOLE [Concomitant]
     Indication: PAIN
  8. TRAMADOL HCL [Concomitant]
     Indication: PAIN

REACTIONS (8)
  - INCORRECT ROUTE OF DRUG ADMINISTRATION [None]
  - DRUG INEFFECTIVE [None]
  - ERECTILE DYSFUNCTION [None]
  - JOINT INJURY [None]
  - FALL [None]
  - INTERVERTEBRAL DISC DEGENERATION [None]
  - ASTHENIA [None]
  - BACK PAIN [None]
